FAERS Safety Report 7232565-9 (Version None)
Quarter: 2011Q1

REPORT INFORMATION
  Report Type: 
  Country: None (occurrence: None)
  Receive Date: 20110119
  Receipt Date: 20110113
  Transmission Date: 20110831
  Serious: Yes (Other)
  Sender: FDA-Public Use
  Company Number: US-ASTRAZENECA-2007UW14730

PATIENT
  Age: 663 Month
  Sex: Female
  Weight: 47.6 kg

DRUGS (24)
  1. SEROQUEL [Suspect]
     Indication: DEPRESSION
     Dosage: 100 - 200 MG
     Route: 048
     Dates: start: 20030310
  2. LOPRESSOR [Concomitant]
     Dates: start: 20040212
  3. HYZAAR [Concomitant]
     Dosage: 50 / 12.5 MG EVERY DAY
     Dates: start: 20040525
  4. SEROQUEL [Suspect]
     Indication: SLEEP DISORDER
     Dosage: 100 - 200 MG
     Route: 048
     Dates: start: 20030310
  5. SEROQUEL [Suspect]
     Dosage: 25 MG 1 4HS
     Route: 048
     Dates: start: 20020101
  6. ZYPREXA [Concomitant]
     Dates: start: 20020101, end: 20040101
  7. COUMADIN [Concomitant]
     Dosage: 5 MG DAILY, 7.5 FOR 2 DAYS
     Dates: start: 20040212
  8. LEXAPRO [Concomitant]
     Dates: start: 20020101
  9. ZETIA [Concomitant]
     Dates: start: 20040212
  10. ASPIRIN [Concomitant]
     Dates: start: 20040212
  11. LIPITOTR [Concomitant]
     Dates: start: 20020101
  12. SEROQUEL [Suspect]
     Indication: BIPOLAR DISORDER
     Dosage: 100 - 200 MG
     Route: 048
     Dates: start: 20030310
  13. WELLBUTRIN [Concomitant]
     Dates: end: 20020101
  14. SEROQUEL [Suspect]
     Dosage: 25 MG 1 4HS
     Route: 048
     Dates: start: 20020101
  15. LITHIUM [Concomitant]
     Dates: start: 19950101, end: 19970101
  16. NITROSTAT [Concomitant]
     Route: 060
     Dates: start: 20040212
  17. SEROQUEL [Suspect]
     Route: 048
     Dates: start: 20031201, end: 20040701
  18. SEROQUEL [Suspect]
     Route: 048
     Dates: start: 20031201, end: 20040701
  19. SEROQUEL [Suspect]
     Dosage: 25 MG 1 4HS
     Route: 048
     Dates: start: 20020101
  20. ZOCOR [Concomitant]
     Dates: start: 20040212
  21. DEPAKOTE ER [Concomitant]
     Dosage: 500 MG TWO HS
     Dates: start: 20020101
  22. METOPROLOL [Concomitant]
  23. REMERON [Concomitant]
     Dosage: 15 MG
     Dates: start: 20020101
  24. SEROQUEL [Suspect]
     Route: 048
     Dates: start: 20031201, end: 20040701

REACTIONS (6)
  - APPENDIX DISORDER [None]
  - ROTATOR CUFF SYNDROME [None]
  - BREAST DISORDER [None]
  - TYPE 2 DIABETES MELLITUS [None]
  - DYSLIPIDAEMIA [None]
  - HYPERGLYCAEMIA [None]
